FAERS Safety Report 7998510-3 (Version None)
Quarter: 2011Q4

REPORT INFORMATION
  Report Type: 
  Country: None (occurrence: None)
  Receive Date: 20111221
  Receipt Date: 20111215
  Transmission Date: 20120403
  Serious: Yes (Other)
  Sender: FDA-Public Use
  Company Number: US-ROCHE-803136

PATIENT
  Sex: Male
  Weight: 63.56 kg

DRUGS (1)
  1. ACCUTANE [Suspect]
     Indication: ACNE CYSTIC
     Route: 065
     Dates: start: 20000906, end: 20010228

REACTIONS (7)
  - ANAL ABSCESS [None]
  - INTESTINAL OBSTRUCTION [None]
  - CROHN'S DISEASE [None]
  - DEPRESSION [None]
  - SUICIDE ATTEMPT [None]
  - COLITIS ULCERATIVE [None]
  - ANAL FISSURE [None]
